FAERS Safety Report 13527210 (Version 1)
Quarter: 2017Q2

REPORT INFORMATION
  Report Type: Spontaneous
  Country: FR (occurrence: FR)
  Receive Date: 20170509
  Receipt Date: 20170509
  Transmission Date: 20170830
  Serious: Yes (Other)
  Sender: FDA-Public Use
  Company Number: FR-SA-2017SA082860

PATIENT
  Age: 84 Year
  Sex: Male

DRUGS (13)
  1. TARDYFERON [Concomitant]
     Active Substance: FERROUS SULFATE
  2. PERFALGAN [Concomitant]
     Active Substance: ACETAMINOPHEN
  3. POLARAMINE [Concomitant]
     Active Substance: DEXCHLORPHENIRAMINE MALEATE
  4. ALPRAZOLAM. [Concomitant]
     Active Substance: ALPRAZOLAM
  5. LOPERAMIDE [Concomitant]
     Active Substance: LOPERAMIDE
  6. ESIDREX [Concomitant]
     Active Substance: HYDROCHLOROTHIAZIDE
  7. PREVISCAN [Concomitant]
     Active Substance: FLUINDIONE
  8. METHYLPREDNISOLONE. [Concomitant]
     Active Substance: METHYLPREDNISOLONE
     Indication: PREMEDICATION
  9. MABTHERA [Suspect]
     Active Substance: RITUXIMAB
     Indication: MANTLE CELL LYMPHOMA
     Route: 042
     Dates: start: 20170414, end: 20170414
  10. BENDAMUSTINE [Suspect]
     Active Substance: BENDAMUSTINE
     Indication: MANTLE CELL LYMPHOMA
     Route: 042
     Dates: start: 20170414, end: 20170415
  11. BACTRIM [Concomitant]
     Active Substance: SULFAMETHOXAZOLE\TRIMETHOPRIM
  12. FASTURTEC [Suspect]
     Active Substance: RASBURICASE
     Route: 042
     Dates: start: 20170414, end: 20170414
  13. CYTARABINE. [Suspect]
     Active Substance: CYTARABINE
     Indication: MANTLE CELL LYMPHOMA
     Route: 042
     Dates: start: 20170414, end: 20170416

REACTIONS (3)
  - Chills [Recovered/Resolved]
  - Thrombocytopenia [Recovering/Resolving]
  - Infusion related reaction [Recovered/Resolved]

NARRATIVE: CASE EVENT DATE: 20170414
